FAERS Safety Report 16802390 (Version 1)
Quarter: 2019Q3

REPORT INFORMATION
  Report Type: Spontaneous
  Country: HU (occurrence: HU)
  Receive Date: 20190912
  Receipt Date: 20190912
  Transmission Date: 20191005
  Serious: Yes (Other)
  Sender: FDA-Public Use
  Company Number: PHHY2019HU210102

PATIENT
  Sex: Female

DRUGS (4)
  1. REVOLADE [Suspect]
     Active Substance: ELTROMBOPAG
     Dosage: 50 MG, Q48H
     Route: 048
  2. REVOLADE [Suspect]
     Active Substance: ELTROMBOPAG
     Dosage: 50 MG, Q48H, 50 MG FOR 2 DAYS, ONE DAY BREAK
     Route: 048
  3. REVOLADE [Suspect]
     Active Substance: ELTROMBOPAG
     Dosage: 50 MG, QD, 50 MG FOR ONE DAY, 2 DAYS BREAK
     Route: 048
     Dates: end: 20180625
  4. REVOLADE [Suspect]
     Active Substance: ELTROMBOPAG
     Indication: IMMUNE THROMBOCYTOPENIC PURPURA
     Dosage: 50 MG, QD
     Route: 048
     Dates: start: 20180129

REACTIONS (6)
  - Thrombocytopenia [Unknown]
  - Thrombocytosis [Unknown]
  - Haemorrhage [Unknown]
  - Embolism [Unknown]
  - Multiple sclerosis relapse [Unknown]
  - Platelet count increased [Unknown]

NARRATIVE: CASE EVENT DATE: 201802
